FAERS Safety Report 8570676-6 (Version None)
Quarter: 2012Q3

REPORT INFORMATION
  Report Type: 
  Country: None (occurrence: None)
  Receive Date: 20120805
  Receipt Date: 20120724
  Transmission Date: 20120928
  Serious: Yes (Hospitalization)
  Sender: FDA-Public Use
  Company Number: PHHO2012FR010751

PATIENT
  Sex: Male
  Weight: 25 kg

DRUGS (33)
  1. IMATINIB MESYLATE [Suspect]
     Indication: ACUTE LYMPHOCYTIC LEUKAEMIA
     Dosage: UNK
     Route: 048
  2. IMATINIB MESYLATE [Suspect]
     Dosage: UNK
     Dates: start: 20111026
  3. CYTARABINE [Concomitant]
     Dosage: 75 MG/INFUSION
     Route: 042
     Dates: start: 20120429, end: 20120502
  4. ZOFRAN [Concomitant]
  5. DEXAMETHASONE [Suspect]
     Dosage: 9 MG/J
     Route: 048
     Dates: start: 20120315, end: 20120405
  6. IMATINIB MESYLATE [Suspect]
     Dosage: UNK
     Route: 048
     Dates: end: 20120303
  7. IMATINIB MESYLATE [Suspect]
     Dosage: 300 MG/J
     Route: 048
     Dates: start: 20120315
  8. IMATINIB MESYLATE [Suspect]
     Dosage: UNK
     Route: 048
     Dates: start: 20120327, end: 20120524
  9. ADRIAMYCIN PFS [Concomitant]
     Indication: ACUTE LYMPHOCYTIC LEUKAEMIA
     Dosage: 22.5 MG/INFUSION
     Route: 042
     Dates: start: 20120322, end: 20120413
  10. DOXORUBICIN HYDROCHLORIDE [Concomitant]
     Dosage: UNK
     Dates: start: 20120330
  11. IMATINIB MESYLATE [Suspect]
     Dosage: UNK
     Route: 048
     Dates: end: 20120209
  12. IMATINIB MESYLATE [Suspect]
     Dosage: UNK
     Route: 048
     Dates: start: 20120223
  13. IMATINIB MESYLATE [Suspect]
     Dosage: UNK
     Route: 048
     Dates: end: 20120419
  14. THIOGUANINE [Concomitant]
     Indication: ACUTE LYMPHOCYTIC LEUKAEMIA
     Dosage: 60 MG/DAY
     Route: 048
     Dates: start: 20120427, end: 20120508
  15. CYCLOPHOSPHAMIDE [Concomitant]
     Indication: ACUTE LYMPHOCYTIC LEUKAEMIA
     Dosage: 1000 MG, UNK
     Route: 042
     Dates: start: 20120327, end: 20120415
  16. VINCRISTINE [Concomitant]
     Dosage: 1.5 MG/M2, UNK
     Route: 042
     Dates: start: 20120322
  17. HYDROCORTISONE [Concomitant]
     Dosage: 10 MG, UNK
     Route: 037
  18. RADIOTHERAPY [Concomitant]
  19. CYTARABINE [Concomitant]
     Indication: ACUTE LYMPHOCYTIC LEUKAEMIA
     Dosage: 2 G/M2, UNK
  20. DOXORUBICIN HYDROCHLORIDE [Concomitant]
     Dosage: UNK
     Dates: start: 20120406
  21. METHOTREXATE [Concomitant]
     Dosage: 12 MG, UNK
     Route: 037
  22. DEXAMETHASONE [Suspect]
     Dosage: 20 G/M2, UNK
     Dates: start: 20120223
  23. CYCLOPHOSPHAMIDE [Concomitant]
     Dosage: 1000 MG, UNK
     Route: 042
     Dates: start: 20120425
  24. VINCRISTINE [Concomitant]
     Dosage: 1.3 MG/M2, UNK
     Route: 042
  25. DOXORUBICIN HYDROCHLORIDE [Concomitant]
     Dosage: UNK
     Dates: start: 20120413
  26. VINCRISTINE [Concomitant]
     Dosage: UNK
     Dates: start: 20120330
  27. PURINETHOL [Concomitant]
  28. VINCRISTINE [Concomitant]
     Dosage: UNK
     Dates: start: 20120406
  29. VINCRISTINE [Concomitant]
     Dosage: UNK
     Dates: start: 20120413
  30. DOXORUBICIN HYDROCHLORIDE [Concomitant]
     Dosage: 25 MG/M2, UNK
     Route: 042
     Dates: start: 20120322
  31. VINORELBINE [Concomitant]
     Indication: ACUTE LYMPHOCYTIC LEUKAEMIA
     Dosage: 1.3 MG/INFUSION
     Route: 042
     Dates: start: 20120322, end: 20120413
  32. DOXORUBICIN HYDROCHLORIDE [Concomitant]
     Dosage: 22.5 MG/M2, UNK
     Route: 042
  33. PLITICAN [Concomitant]

REACTIONS (2)
  - DEPRESSION SUICIDAL [None]
  - HALLUCINATION [None]
